FAERS Safety Report 25021291 (Version 2)
Quarter: 2025Q2

REPORT INFORMATION
  Report Type: Spontaneous
  Country: US (occurrence: US)
  Receive Date: 20250228
  Receipt Date: 20250422
  Transmission Date: 20250716
  Serious: Yes (Death, Other)
  Sender: SPECGX
  Company Number: US-SPECGX-T202500510

PATIENT
  Age: 40 Year
  Sex: Male

DRUGS (3)
  1. OXYCODONE [Suspect]
     Active Substance: OXYCODONE
     Indication: Product used for unknown indication
     Route: 065
  2. METHAMPHETAMINE [Suspect]
     Active Substance: METHAMPHETAMINE
     Indication: Product used for unknown indication
     Route: 065
  3. FENTANYL [Suspect]
     Active Substance: FENTANYL
     Indication: Product used for unknown indication
     Route: 065

REACTIONS (11)
  - Meningitis streptococcal [Fatal]
  - Septic shock [Fatal]
  - Toxicity to various agents [Fatal]
  - CNS ventriculitis [Unknown]
  - Craniocerebral injury [Unknown]
  - Subdural haematoma [Unknown]
  - Skin abrasion [Unknown]
  - Contusion [Unknown]
  - Periorbital haemorrhage [Unknown]
  - Ecchymosis [Unknown]
  - Musculoskeletal chest pain [Unknown]
